FAERS Safety Report 16762293 (Version 2)
Quarter: 2019Q3

REPORT INFORMATION
  Report Type: Report from Study
  Country: None (occurrence: US)
  Receive Date: 20190831
  Receipt Date: 20190904
  Transmission Date: 20191005
  Serious: Yes (Death)
  Sender: FDA-Public Use
  Company Number: US-ABBVIE-19K-163-2908939-00

PATIENT
  Age: 79 Year
  Sex: Female

DRUGS (3)
  1. VENCLEXTA [Suspect]
     Active Substance: VENETOCLAX
     Indication: FALLOPIAN TUBE CANCER
     Dosage: TOOK 2 TABLETS ON DAY 2
     Route: 048
  2. VENCLEXTA [Suspect]
     Active Substance: VENETOCLAX
     Indication: REFRACTORY ANAEMIA WITH AN EXCESS OF BLASTS
     Dosage: TOOK ONE TABLET ON DAY 1
     Route: 048
  3. VENCLEXTA [Suspect]
     Active Substance: VENETOCLAX
     Dosage: TOOK 4 TABLETS ON DAY 3
     Route: 048

REACTIONS (2)
  - Off label use [Unknown]
  - Death [Fatal]

NARRATIVE: CASE EVENT DATE: 201906
